FAERS Safety Report 8507798 (Version 2)
Quarter: 2012Q4

REPORT INFORMATION
  Report Type: 
  Country: US (occurrence: US)
  Receive Date: 20120412
  Receipt Date: 20121228
  Transmission Date: 20130627
  Serious: No
  Sender: FDA-Public Use
  Company Number: US-ASTRAZENECA-2011SE23943

PATIENT
  Age: 64 Year
  Sex: Female

DRUGS (2)
  1. NEXIUM [Suspect]
     Route: 048
  2. SOME OVER THE COUNTER MEDICINES [Concomitant]

REACTIONS (6)
  - Dyspnoea [Unknown]
  - Gastric disorder [Unknown]
  - Sinus disorder [Unknown]
  - Hypersensitivity [Unknown]
  - Malaise [Unknown]
  - Drug dose omission [Unknown]
